FAERS Safety Report 16468663 (Version 2)
Quarter: 2019Q3

REPORT INFORMATION
  Report Type: Spontaneous
  Country: US (occurrence: US)
  Receive Date: 20190624
  Receipt Date: 20190726
  Transmission Date: 20191004
  Serious: Yes (Other)
  Sender: FDA-Public Use
  Company Number: US-PFIZER INC-2019266920

PATIENT
  Age: 56 Year
  Sex: Female

DRUGS (2)
  1. XELJANZ [Suspect]
     Active Substance: TOFACITINIB CITRATE
     Dosage: 5 MG, 1X/DAY
     Dates: start: 20190517
  2. XELJANZ [Suspect]
     Active Substance: TOFACITINIB CITRATE
     Dosage: 5 MG, 2X/DAY

REACTIONS (12)
  - Malaise [Unknown]
  - White blood cell count decreased [Unknown]
  - Weight increased [Unknown]
  - Wheezing [Unknown]
  - Foot deformity [Unknown]
  - Respiratory disorder [Unknown]
  - Leukaemia [Unknown]
  - Headache [Unknown]
  - Cough [Unknown]
  - Back pain [Unknown]
  - Diabetes mellitus [Unknown]
  - Depression [Unknown]
